FAERS Safety Report 8541118 (Version 3)
Quarter: 2012Q4

REPORT INFORMATION
  Report Type: Report from Study
  Country: DE (occurrence: DE)
  Receive Date: 20120502
  Receipt Date: 20120904
  Transmission Date: 20130627
  Serious: Yes (Hospitalization)
  Sender: FDA-Public Use
  Company Number: DE-JNJFOC-20120412918

PATIENT
  Age: 27 Year
  Sex: Male

DRUGS (2)
  1. PALIPERIDONE PALMITATE [Suspect]
     Indication: SCHIZOPHRENIA, PARANOID TYPE
     Route: 030
     Dates: start: 20120221
  2. L-THYROXIN [Concomitant]
     Indication: HYPERTHYROIDISM
     Route: 065
     Dates: start: 20120216

REACTIONS (1)
  - Schizophrenia, paranoid type [Recovered/Resolved]
